FAERS Safety Report 8821151 (Version 1)
Quarter: 2012Q4

REPORT INFORMATION
  Report Type: 
  Country: US (occurrence: US)
  Receive Date: 20121002
  Receipt Date: 20121002
  Transmission Date: 20130627
  Serious: No
  Sender: FDA-Public Use
  Company Number: US-BRISTOL-MYERS SQUIBB COMPANY-16383176

PATIENT
  Age: 47 Year
  Sex: Female

DRUGS (3)
  1. BUSPAR [Suspect]
     Indication: ANXIETY
     Dates: start: 20111206
  2. LATUDA [Suspect]
     Indication: BIPOLAR DISORDER
     Dosage: At bed time
     Dates: start: 20111206
  3. PRISTIQ [Suspect]
     Indication: DEPRESSION
     Dosage: At bed time
     Dates: start: 20111206

REACTIONS (5)
  - Feeling abnormal [Not Recovered/Not Resolved]
  - Muscle twitching [Not Recovered/Not Resolved]
  - Myalgia [Not Recovered/Not Resolved]
  - Insomnia [Not Recovered/Not Resolved]
  - Abdominal distension [Not Recovered/Not Resolved]
